FAERS Safety Report 8975297 (Version 2)
Quarter: 2013Q1

REPORT INFORMATION
  Report Type: Spontaneous
  Country: US (occurrence: US)
  Receive Date: 20121219
  Receipt Date: 20130212
  Transmission Date: 20140127
  Serious: Yes (Hospitalization, Other)
  Sender: FDA-Public Use
  Company Number: US-TEVA-376534USA

PATIENT
  Sex: Male
  Weight: 94.89 kg

DRUGS (13)
  1. SOTALOL [Suspect]
     Indication: ATRIAL FIBRILLATION
     Dosage: 2X DAY
     Dates: start: 201211, end: 201211
  2. LIPITOR [Suspect]
     Indication: BLOOD CHOLESTEROL INCREASED
     Dosage: 20 MILLIGRAM DAILY;
     Route: 048
  3. ACCUPRIL [Suspect]
     Indication: BLOOD CHOLESTEROL INCREASED
     Dosage: 20 MILLIGRAM DAILY;
     Route: 048
  4. METFORMIN [Concomitant]
     Indication: DIABETES MELLITUS
     Dosage: 2000 MILLIGRAM DAILY;
  5. FLUOXETINE [Concomitant]
     Indication: AFFECTIVE DISORDER
     Dosage: 20 MILLIGRAM DAILY;
  6. VESICARE [Concomitant]
     Indication: URINARY TRACT DISORDER
     Dosage: 20 MILLIGRAM DAILY;
  7. PRILOSEC [Concomitant]
     Indication: GASTROOESOPHAGEAL REFLUX DISEASE
     Dosage: 20 MILLIGRAM DAILY;
  8. OXYCODONE [Concomitant]
     Indication: PAIN
     Dosage: 10/325 MG; AS NEEDED
  9. VITAMIN D [Concomitant]
  10. TYLENOL EXTRA-STRENGTH [Concomitant]
     Indication: PAIN
     Dosage: AS NEEDED
  11. VITAMIN C [Concomitant]
  12. FOLIC ACID [Concomitant]
  13. WARFARIN [Concomitant]

REACTIONS (8)
  - Coronary artery occlusion [Unknown]
  - Atrial fibrillation [Unknown]
  - Loss of consciousness [Unknown]
  - Haemorrhage [Unknown]
  - Drug ineffective [Unknown]
  - Dizziness [Unknown]
  - Balance disorder [Unknown]
  - Fall [Unknown]
